FAERS Safety Report 16377841 (Version 2)
Quarter: 2020Q1

REPORT INFORMATION
  Report Type: Report from Study
  Country: None (occurrence: BR)
  Receive Date: 20190531
  Receipt Date: 20200312
  Transmission Date: 20200409
  Serious: Yes (Hospitalization, Other)
  Sender: FDA-Public Use
  Company Number: BR-ABBVIE-19K-020-2799947-00

PATIENT
  Sex: Male
  Weight: 65 kg

DRUGS (3)
  1. HUMIRA [Suspect]
     Active Substance: ADALIMUMAB
     Dosage: LOADING DOSE - WEEK 02
     Route: 058
  2. HUMIRA [Suspect]
     Active Substance: ADALIMUMAB
     Route: 058
  3. HUMIRA [Suspect]
     Active Substance: ADALIMUMAB
     Indication: CROHN^S DISEASE
     Dosage: LOADING DOSE - WEEK 0
     Route: 058
     Dates: start: 20161206, end: 20161206

REACTIONS (17)
  - Bladder disorder [Unknown]
  - Intestinal perforation [Unknown]
  - Pain [Unknown]
  - Intra-abdominal fluid collection [Unknown]
  - Post procedural complication [Unknown]
  - Colostomy closure [Recovered/Resolved]
  - Appendicectomy [Unknown]
  - Procedural complication [Unknown]
  - Colostomy closure [Recovered/Resolved]
  - Diarrhoea [Unknown]
  - Gastrointestinal disorder [Unknown]
  - Emphysema [Unknown]
  - Abnormal faeces [Unknown]
  - Intestinal resection [Unknown]
  - Pulmonary oedema [Unknown]
  - Colostomy closure [Recovered/Resolved]
  - Post procedural infection [Recovering/Resolving]

NARRATIVE: CASE EVENT DATE: 2016
